FAERS Safety Report 6057340-2 (Version None)
Quarter: 2009Q1

REPORT INFORMATION
  Report Type: 
  Country: None (occurrence: None)
  Receive Date: 20090129
  Receipt Date: 20081216
  Transmission Date: 20090719
  Serious: No
  Sender: FDA-Public Use
  Company Number: A0755272A

PATIENT

DRUGS (2)
  1. WELLBUTRIN [Suspect]
     Route: 048
  2. ARIMIDEX [Concomitant]
     Indication: BREAST CANCER

REACTIONS (2)
  - DRUG EFFECT DECREASED [None]
  - PRODUCT QUALITY ISSUE [None]
